FAERS Safety Report 8329593-9 (Version None)
Quarter: 2012Q2

REPORT INFORMATION
  Report Type: 
  Country: None (occurrence: None)
  Receive Date: 20120502
  Receipt Date: 20120423
  Transmission Date: 20120825
  Serious: Yes (Hospitalization)
  Sender: FDA-Public Use
  Company Number: PHEH2012US009066

PATIENT
  Sex: Female

DRUGS (14)
  1. DIOVAN HCT [Suspect]
     Indication: CARDIAC FAILURE CONGESTIVE
     Dosage: 1 DF, QD (80/UNKNOWN DOSE OF HCT)
     Route: 048
  2. BUPROPION HCL [Concomitant]
     Indication: DEPRESSION
     Dosage: 200 MG
     Route: 048
  3. RESTASIS [Concomitant]
     Indication: DRY EYE
     Dosage: 0.05 %, BID
  4. FUROSEMIDE [Concomitant]
     Indication: FLUID RETENTION
     Dosage: 40 MG, QD
     Route: 048
  5. JANTOVEN [Concomitant]
     Indication: THROMBOSIS
     Dosage: 2 DF, QD (2 MG)
     Route: 048
  6. ZYRTEC [Concomitant]
     Indication: HYPERSENSITIVITY
     Dosage: 10 MG, QD
     Route: 048
  7. SPIRONOLACTONE [Concomitant]
     Indication: CARDIAC FAILURE CONGESTIVE
     Dosage: 25 MG, QD
     Route: 048
  8. OMEPRAZOLE [Concomitant]
     Indication: GASTROOESOPHAGEAL REFLUX DISEASE
     Dosage: 20 MG, QD
     Route: 048
  9. NASACORT [Concomitant]
     Indication: HYPERSENSITIVITY
     Dosage: 50 UG, QD
  10. QVAR 40 [Concomitant]
     Dosage: 80 UG, BID
  11. XOPENEX [Concomitant]
     Dosage: 45 UG,AS NEEDED
  12. ZOLPIDEM [Concomitant]
     Indication: INSOMNIA
     Dosage: 5 MG, AT NIGHT WHEN NEEDED
     Route: 048
  13. LEVOTHYROXINE SODIUM [Concomitant]
     Indication: THYROID DISORDER
     Dosage: 75 MG
     Route: 048
  14. AZELASTINE HCL [Concomitant]
     Indication: HYPERSENSITIVITY
     Dosage: 137 UG, QD
     Route: 048

REACTIONS (2)
  - DYSPNOEA [None]
  - PULMONARY THROMBOSIS [None]
